FAERS Safety Report 6201550-8 (Version None)
Quarter: 2009Q2

REPORT INFORMATION
  Report Type: 
  Country: None (occurrence: None)
  Receive Date: 20090519
  Receipt Date: 20090512
  Transmission Date: 20091009
  Serious: Yes (Death)
  Sender: FDA-Public Use
  Company Number: ENT 2009-0036

PATIENT
  Age: 75 Year
  Sex: Female

DRUGS (12)
  1. COMTAN [Suspect]
     Indication: DRUG EFFECT DECREASED
     Dosage: 500 MG ORAL; 300 MG ORAL,500 MG, ORAL
     Route: 048
     Dates: end: 20071226
  2. COMTAN [Suspect]
     Indication: DRUG EFFECT DECREASED
     Dosage: 500 MG ORAL; 300 MG ORAL,500 MG, ORAL
     Route: 048
     Dates: end: 20080104
  3. COMTAN [Suspect]
     Indication: DRUG EFFECT DECREASED
     Dosage: 500 MG ORAL; 300 MG ORAL,500 MG, ORAL
     Route: 048
     Dates: end: 20080128
  4. CARBIDOPA AND LEVODOPA [Concomitant]
  5. PRAMIPEXOLE DIHYDROCHLORIDE [Concomitant]
  6. NAUZELIN [Concomitant]
  7. SELBEX [Concomitant]
  8. SEVEN EP [Concomitant]
  9. LUVOX [Concomitant]
  10. MAGLAX [Concomitant]
  11. RIZE [Concomitant]
  12. EVISTA [Concomitant]

REACTIONS (5)
  - ABDOMINAL DISTENSION [None]
  - CARDIAC FAILURE ACUTE [None]
  - CONSTIPATION [None]
  - FLATULENCE [None]
  - X-RAY GASTROINTESTINAL TRACT ABNORMAL [None]
